FAERS Safety Report 23641290 (Version 2)
Quarter: 2024Q3

REPORT INFORMATION
  Report Type: Spontaneous
  Country: JP (occurrence: JP)
  Receive Date: 20240318
  Receipt Date: 20240930
  Transmission Date: 20241017
  Serious: Yes (Other)
  Sender: ROCHE
  Company Number: JP-CHUGAI-2024007551

PATIENT
  Age: 6 Decade
  Sex: Female
  Weight: 52 kg

DRUGS (2)
  1. VABYSMO [Suspect]
     Active Substance: FARICIMAB-SVOA
     Indication: Diabetic retinal oedema
     Dosage: 0.05 MILLILITER,ONCE EVERY TWO MONTHS, BOTH EYE
     Route: 050
     Dates: start: 20230307, end: 20240109
  2. BROMFENAC SODIUM [Suspect]
     Active Substance: BROMFENAC SODIUM
     Indication: Product used for unknown indication
     Dosage: BID,BOTH EYE
     Route: 047
     Dates: start: 20220705, end: 20240123

REACTIONS (2)
  - Astigmatism [Recovered/Resolved]
  - Corneal disorder [Recovered/Resolved]

NARRATIVE: CASE EVENT DATE: 20231201
